FAERS Safety Report 25741352 (Version 1)
Quarter: 2025Q3

REPORT INFORMATION
  Report Type: Spontaneous
  Country: JP (occurrence: JP)
  Receive Date: 20250829
  Receipt Date: 20250829
  Transmission Date: 20251020
  Serious: Yes (Hospitalization)
  Sender: CLINIGEN
  Company Number: JP-CLINIGEN-CLI2025000126

PATIENT

DRUGS (1)
  1. FOSCAVIR [Suspect]
     Active Substance: FOSCARNET SODIUM
     Indication: Cytomegalovirus viraemia
     Route: 065

REACTIONS (5)
  - Condition aggravated [Unknown]
  - Adverse drug reaction [Unknown]
  - Pyrexia [Unknown]
  - Cytomegalovirus infection [Unknown]
  - Off label use [Unknown]
